FAERS Safety Report 17326335 (Version 1)
Quarter: 2020Q1

REPORT INFORMATION
  Report Type: Spontaneous
  Country: FR (occurrence: FR)
  Receive Date: 20200127
  Receipt Date: 20200127
  Transmission Date: 20200409
  Serious: Yes (Hospitalization)
  Sender: FDA-Public Use
  Company Number: FR-MYLANLABS-2020M1008281

PATIENT
  Age: 80 Year
  Sex: Female

DRUGS (4)
  1. LANSOPRAZOLE. [Concomitant]
     Active Substance: LANSOPRAZOLE
     Indication: PRODUCT USED FOR UNKNOWN INDICATION
     Dosage: 15 MILLIGRAM, TOTAL
     Route: 048
     Dates: start: 20191025, end: 20191025
  2. LEVOTHYROX [Concomitant]
     Active Substance: LEVOTHYROXINE
     Indication: PRODUCT USED FOR UNKNOWN INDICATION
     Dosage: 1 DOSAGE FORM, TOTAL
     Route: 048
     Dates: start: 20191025, end: 20191025
  3. FUROSEMIDE. [Suspect]
     Active Substance: FUROSEMIDE
     Indication: PRODUCT USED FOR UNKNOWN INDICATION
     Dosage: 40 MILLIGRAM, TOTAL
     Route: 048
     Dates: start: 20191025, end: 20191025
  4. BISOPROLOL [Suspect]
     Active Substance: BISOPROLOL
     Indication: PRODUCT USED FOR UNKNOWN INDICATION
     Dosage: 5 MILLIGRAM, TOTAL
     Route: 048
     Dates: start: 20191025, end: 20191025

REACTIONS (3)
  - Bradycardia [Recovered/Resolved]
  - Atrioventricular block [Recovered/Resolved]
  - Wrong drug [Recovered/Resolved]

NARRATIVE: CASE EVENT DATE: 20191025
